FAERS Safety Report 20659475 (Version 1)
Quarter: 2022Q1

REPORT INFORMATION
  Report Type: Report from Study
  Country: US (occurrence: US)
  Receive Date: 20220331
  Receipt Date: 20220331
  Transmission Date: 20220423
  Serious: Yes (Hospitalization, Other)
  Sender: FDA-Public Use
  Company Number: US-ABBVIE-22K-163-4340232-00

PATIENT
  Age: 67 Year
  Sex: Male

DRUGS (1)
  1. VENCLEXTA [Suspect]
     Active Substance: VENETOCLAX
     Indication: Product used for unknown indication
     Route: 048
     Dates: start: 20220309, end: 20220329

REACTIONS (4)
  - Abscess intestinal [Recovering/Resolving]
  - Acute myeloid leukaemia [Unknown]
  - Gastrointestinal haemorrhage [Recovering/Resolving]
  - Platelet count abnormal [Recovering/Resolving]

NARRATIVE: CASE EVENT DATE: 20220301
